FAERS Safety Report 11446672 (Version 1)
Quarter: 2015Q3

REPORT INFORMATION
  Report Type: Spontaneous
  Country: US (occurrence: US)
  Receive Date: 20150831
  Receipt Date: 20150831
  Transmission Date: 20151125
  Serious: No
  Sender: FDA-Public Use
  Company Number: US-ELI_LILLY_AND_COMPANY-US200810002086

PATIENT
  Age: 33 Year
  Sex: Female

DRUGS (1)
  1. CYMBALTA [Suspect]
     Active Substance: DULOXETINE HYDROCHLORIDE
     Dosage: 60 MG, UNK
     Dates: start: 200807, end: 20081004

REACTIONS (8)
  - Nausea [Unknown]
  - Headache [Unknown]
  - Dizziness [Unknown]
  - Myalgia [Unknown]
  - Adverse event [Unknown]
  - Pain [Unknown]
  - Loss of employment [Unknown]
  - Feeling abnormal [Unknown]

NARRATIVE: CASE EVENT DATE: 20081005
